FAERS Safety Report 6642059-7 (Version None)
Quarter: 2010Q1

REPORT INFORMATION
  Report Type: 
  Country: None (occurrence: None)
  Receive Date: 20100319
  Receipt Date: 20100308
  Transmission Date: 20100710
  Serious: Yes (Hospitalization)
  Sender: FDA-Public Use
  Company Number: PHHY2010IL09731

PATIENT
  Age: 74 Year
  Sex: Male
  Weight: 100 kg

DRUGS (10)
  1. EXJADE [Suspect]
     Indication: THALASSAEMIA
     Dosage: 1500 MG DAILY
     Route: 048
     Dates: start: 20061001, end: 20100201
  2. EXJADE [Suspect]
     Indication: CHELATION THERAPY
  3. FOLIC ACID [Concomitant]
  4. DOXAZOSIN [Concomitant]
  5. PAROXETINE HCL [Concomitant]
  6. CARVEDILOL [Concomitant]
  7. WARFARIN SODIUM [Concomitant]
  8. ENALAPRIL MALEATE [Concomitant]
  9. LERCANIDIPINE [Concomitant]
  10. FUROSEMIDE [Concomitant]

REACTIONS (7)
  - BILE DUCT OBSTRUCTION [None]
  - BLADDER CANCER [None]
  - BLADDER REPAIR [None]
  - BLOOD BILIRUBIN INCREASED [None]
  - DUODENAL SPHINCTEROTOMY [None]
  - HAEMOLYSIS [None]
  - LIVER INJURY [None]
